FAERS Safety Report 5870904-1 (Version None)
Quarter: 2008Q3

REPORT INFORMATION
  Report Type: 
  Country: None (occurrence: None)
  Receive Date: 20080904
  Receipt Date: 20080901
  Transmission Date: 20090109
  Serious: Yes (Hospitalization, Other)
  Sender: FDA-Public Use
  Company Number: BR-ASTRAZENECA-2008UW17898

PATIENT
  Age: 27 Year
  Sex: Female

DRUGS (1)
  1. ATENOL [Suspect]
     Dosage: 20 TABLETS
     Route: 048

REACTIONS (3)
  - BLOOD PRESSURE DECREASED [None]
  - OVERDOSE [None]
  - SOMNOLENCE [None]
